FAERS Safety Report 14382837 (Version 2)
Quarter: 2018Q1

REPORT INFORMATION
  Report Type: Spontaneous
  Country: US (occurrence: US)
  Receive Date: 20180113
  Receipt Date: 20180206
  Transmission Date: 20180509
  Serious: Yes (Other)
  Sender: FDA-Public Use
  Company Number: US-ASTRAZENECA-2018SE02539

PATIENT
  Age: 27756 Day
  Sex: Female
  Weight: 71.2 kg

DRUGS (7)
  1. MEPOLIZUMAB [Concomitant]
     Active Substance: MEPOLIZUMAB
     Dosage: ONE INJECTION
  2. SPIRIVA [Concomitant]
     Active Substance: TIOTROPIUM BROMIDE MONOHYDRATE
  3. OXYGEN. [Concomitant]
     Active Substance: OXYGEN
     Dosage: AT BEDTIME
  4. PREDNISONE. [Concomitant]
     Active Substance: PREDNISONE
  5. BROVANA [Concomitant]
     Active Substance: ARFORMOTEROL TARTRATE
  6. PULMICORT TURBUHALER [Concomitant]
     Active Substance: BUDESONIDE
     Dosage: VIA NEBULIZER TWO TIMES A DAY
  7. FASENRA [Suspect]
     Active Substance: BENRALIZUMAB
     Indication: ASTHMA
     Dosage: 30.0MG UNKNOWN
     Route: 058
     Dates: start: 20171206

REACTIONS (1)
  - Pneumonia [Unknown]

NARRATIVE: CASE EVENT DATE: 20171231
